FAERS Safety Report 16192111 (Version 1)
Quarter: 2019Q2

REPORT INFORMATION
  Report Type: Spontaneous
  Country: US (occurrence: US)
  Receive Date: 20190412
  Receipt Date: 20190412
  Transmission Date: 20190711
  Serious: No
  Sender: FDA-Public Use
  Company Number: US-ASTRAZENECA-2019SE42385

PATIENT
  Sex: Female

DRUGS (2)
  1. FASLODEX [Suspect]
     Active Substance: FULVESTRANT
     Indication: BREAST CANCER FEMALE
     Route: 030
  2. IBRANCE [Suspect]
     Active Substance: PALBOCICLIB
     Dosage: 125 MG DAILY FOR 21 DAYS AND OFF 7 DAYS
     Route: 048
     Dates: start: 20190213

REACTIONS (8)
  - Cough [Unknown]
  - Malaise [Unknown]
  - Infection [Unknown]
  - Product dose omission [Unknown]
  - Lower respiratory tract infection [Unknown]
  - White blood cell count abnormal [Unknown]
  - Pulmonary mass [Unknown]
  - Neutrophil count decreased [Unknown]
